FAERS Safety Report 23149362 (Version 1)
Quarter: 2023Q4

REPORT INFORMATION
  Report Type: Report from Study
  Country: AR (occurrence: AR)
  Receive Date: 20231106
  Receipt Date: 20231106
  Transmission Date: 20240110
  Serious: Yes (Other)
  Sender: FDA-Public Use
  Company Number: AR-ABBVIE-5478915

PATIENT
  Age: 75 Year
  Sex: Female

DRUGS (1)
  1. HUMIRA [Suspect]
     Active Substance: ADALIMUMAB
     Indication: Psoriatic arthropathy
     Dosage: FORM STRENGTH: 40 MG
     Route: 058
     Dates: start: 20130101

REACTIONS (2)
  - Dacryostenosis acquired [Not Recovered/Not Resolved]
  - Ocular procedural complication [Unknown]

NARRATIVE: CASE EVENT DATE: 20230901
